FAERS Safety Report 11118128 (Version 1)
Quarter: 2015Q2

REPORT INFORMATION
  Report Type: Report from Study
  Country: US (occurrence: US)
  Receive Date: 20150518
  Receipt Date: 20150518
  Transmission Date: 20150821
  Serious: No
  Sender: FDA-Public Use
  Company Number: US-AMGEN-USASL2015045686

PATIENT
  Age: 34 Year
  Sex: Female

DRUGS (1)
  1. ENBREL [Suspect]
     Active Substance: ETANERCEPT
     Indication: RHEUMATOID ARTHRITIS
     Dosage: 50 MG, QWK
     Route: 065
     Dates: start: 20150216, end: 20150430

REACTIONS (6)
  - Injection site pruritus [Recovered/Resolved]
  - Cough [Not Recovered/Not Resolved]
  - Injection site warmth [Recovered/Resolved]
  - Malaise [Not Recovered/Not Resolved]
  - Injection site erythema [Recovered/Resolved]
  - Respiratory tract congestion [Not Recovered/Not Resolved]

NARRATIVE: CASE EVENT DATE: 20150326
